FAERS Safety Report 5900468-5 (Version None)
Quarter: 2008Q3

REPORT INFORMATION
  Report Type: 
  Country: None (occurrence: None)
  Receive Date: 20080926
  Receipt Date: 20080915
  Transmission Date: 20090109
  Serious: Yes (Other)
  Sender: FDA-Public Use
  Company Number: US-PFIZER INC-2008062935

PATIENT
  Sex: Female
  Weight: 81.6 kg

DRUGS (10)
  1. CHANTIX [Suspect]
     Indication: SMOKING CESSATION THERAPY
     Route: 048
     Dates: start: 20080501, end: 20080101
  2. PAXIL [Concomitant]
     Dates: start: 20080101
  3. EFFEXOR [Concomitant]
     Dates: start: 20080101
  4. ATENOLOL/HYDROCHLOROTHIAZIDE [Concomitant]
  5. VIVELLE [Concomitant]
  6. ACETYLSALICYLIC ACID SRT [Concomitant]
  7. ZYRTEC [Concomitant]
  8. PROMETRIUM [Concomitant]
  9. PROVIGIL [Concomitant]
  10. ALCOHOL [Concomitant]

REACTIONS (2)
  - ANGER [None]
  - SUICIDAL IDEATION [None]
